FAERS Safety Report 16018912 (Version 1)
Quarter: 2019Q1

REPORT INFORMATION
  Report Type: Spontaneous
  Country: US (occurrence: US)
  Receive Date: 20190228
  Receipt Date: 20190228
  Transmission Date: 20190418
  Serious: No
  Sender: FDA-Public Use
  Company Number: US-SA-2019SA054676

PATIENT
  Age: 3 Year
  Sex: Female

DRUGS (1)
  1. LUMIZYME [Suspect]
     Active Substance: ALGLUCOSIDASE ALFA
     Dosage: 650 MG, EVERY WEEK
     Route: 041
     Dates: start: 201511

REACTIONS (2)
  - Vascular device user [Unknown]
  - Product use issue [Unknown]
